FAERS Safety Report 7802518-8 (Version None)
Quarter: 2011Q4

REPORT INFORMATION
  Report Type: 
  Country: None (occurrence: None)
  Receive Date: 20111007
  Receipt Date: 20110929
  Transmission Date: 20120403
  Serious: Yes (Hospitalization)
  Sender: FDA-Public Use
  Company Number: GR-GLAXOSMITHKLINE-B0753395A

PATIENT
  Age: 44 Year
  Sex: Female

DRUGS (1)
  1. CEFUROXIME AXETIL [Suspect]
     Indication: RESPIRATORY TRACT INFECTION
     Route: 048

REACTIONS (3)
  - ANAPHYLACTIC SHOCK [None]
  - BLOOD PRESSURE DECREASED [None]
  - DYSPNOEA [None]
